FAERS Safety Report 8011180-3 (Version None)
Quarter: 2011Q4

REPORT INFORMATION
  Report Type: 
  Country: None (occurrence: None)
  Receive Date: 20111228
  Receipt Date: 20111216
  Transmission Date: 20120403
  Serious: Yes (Other)
  Sender: FDA-Public Use
  Company Number: US-JNJFOC-20111207890

PATIENT
  Sex: Male
  Weight: 92.99 kg

DRUGS (3)
  1. HYDROCHLOROTHIAZIDE [Concomitant]
     Indication: HYPERTENSION
  2. BENAZEPRIL HYDROCHLORIDE [Concomitant]
     Indication: HYPERTENSION
  3. REMICADE [Suspect]
     Indication: COLITIS ULCERATIVE
     Route: 042
     Dates: start: 20110804

REACTIONS (5)
  - PAIN [None]
  - MUSCULOSKELETAL STIFFNESS [None]
  - SWELLING [None]
  - DEFAECATION URGENCY [None]
  - INSOMNIA [None]
